FAERS Safety Report 10500703 (Version 2)
Quarter: 2014Q4

REPORT INFORMATION
  Report Type: Spontaneous
  Country: US (occurrence: US)
  Receive Date: 20141006
  Receipt Date: 20141006
  Transmission Date: 20150528
  Serious: Yes (Other)
  Sender: FDA-Public Use
  Company Number: US-BAUSCH-BL-2014-005974

PATIENT
  Sex: Female

DRUGS (4)
  1. OBAGI TRETINOIN CREAM USP 0.1% (TRIAX) [Suspect]
     Active Substance: TRETINOIN
     Indication: PRODUCT USED FOR UNKNOWN INDICATION
     Route: 061
     Dates: start: 2014, end: 20140915
  2. NU-DERM CLEAR [Suspect]
     Active Substance: HYDROQUINONE
     Indication: PRODUCT USED FOR UNKNOWN INDICATION
     Route: 061
     Dates: start: 2014, end: 20140915
  3. PROFESSIONAL-C SERUM 10% [Suspect]
     Active Substance: ASCORBIC ACID
     Indication: PRODUCT USED FOR UNKNOWN INDICATION
     Route: 061
     Dates: start: 2014, end: 20140915
  4. NU-DERM CLEAR [Suspect]
     Active Substance: HYDROQUINONE

REACTIONS (5)
  - Suicidal ideation [Unknown]
  - Application site discolouration [Unknown]
  - Application site bruise [Unknown]
  - Application site exfoliation [Unknown]
  - Application site pain [Not Recovered/Not Resolved]

NARRATIVE: CASE EVENT DATE: 2014
